FAERS Safety Report 8992069 (Version 1)
Quarter: 2012Q4

REPORT INFORMATION
  Report Type: 
  Country: IT (occurrence: IT)
  Receive Date: 20121231
  Receipt Date: 20121231
  Transmission Date: 20130627
  Serious: Yes (Hospitalization)
  Sender: FDA-Public Use
  Company Number: IT-ABBOTT-12P-083-1027949-00

PATIENT
  Age: 12 Year
  Sex: Female

DRUGS (1)
  1. KLACID [Suspect]
     Indication: PYREXIA
     Route: 048
     Dates: start: 20121217, end: 20121217

REACTIONS (1)
  - Presyncope [Recovered/Resolved]
